FAERS Safety Report 5169397-1 (Version None)
Quarter: 2006Q4

REPORT INFORMATION
  Report Type: 
  Country: None (occurrence: None)
  Receive Date: 20061201
  Receipt Date: 20061115
  Transmission Date: 20070319
  Serious: Yes (Hospitalization)
  Sender: FDA-Public Use
  Company Number: 232653

PATIENT
  Age: 66 Year
  Sex: Female
  Weight: 100.2 kg

DRUGS (4)
  1. BEVACIZUMAB OR PLACEBO(BEVACIZUMAB) PWDR + SOLVENT,INFUSION SOLN, 100M [Suspect]
     Indication: BREAST CANCER METASTATIC
     Dosage: 1590 MG, Q3W, INTRAVENOUS
     Route: 042
     Dates: start: 20060630, end: 20061020
  2. BEVACIZUMAB OR PLACEBO(BEVACIZUMAB) PWDR + SOLVENT,INFUSION SOLN, 100M [Suspect]
  3. GEMCITABINE [Concomitant]
  4. CALCIUM (CALCIUM NOS) [Concomitant]

REACTIONS (10)
  - CELLULITIS [None]
  - CORYNEBACTERIUM INFECTION [None]
  - HAEMATOCRIT DECREASED [None]
  - HAEMOGLOBIN DECREASED [None]
  - HEART RATE INCREASED [None]
  - OEDEMA PERIPHERAL [None]
  - PSEUDOMONAS INFECTION [None]
  - RED BLOOD CELL COUNT DECREASED [None]
  - SKIN ULCER [None]
  - STAPHYLOCOCCAL INFECTION [None]
